FAERS Safety Report 18620794 (Version 2)
Quarter: 2021Q1

REPORT INFORMATION
  Report Type: Report from Study
  Country: US (occurrence: US)
  Receive Date: 20201216
  Receipt Date: 20210106
  Transmission Date: 20210419
  Serious: Yes (Death, Hospitalization)
  Sender: FDA-Public Use
  Company Number: US-ROCHE-2732384

PATIENT
  Age: 90 Year
  Sex: Female
  Weight: 54.99 kg

DRUGS (23)
  1. TRAMADOL. [Concomitant]
     Active Substance: TRAMADOL
  2. TYLENOL [Concomitant]
     Active Substance: ACETAMINOPHEN
  3. CEFTRIAXONE. [Concomitant]
     Active Substance: CEFTRIAXONE
  4. ONDANSETRON [Concomitant]
     Active Substance: ONDANSETRON
  5. ATEZOLIZUMAB. [Suspect]
     Active Substance: ATEZOLIZUMAB
     Indication: NON-SMALL CELL LUNG CANCER
     Dosage: ON 30/OCT/2020, THE PATIENT RECEIVED THE MOST RECENT DOSE OF ATEZOLIZUMAB PRIOR TO THE EVENT ONSET.
     Route: 042
     Dates: start: 20200816, end: 20201127
  6. DOCUSATE SODIUM. [Concomitant]
     Active Substance: DOCUSATE SODIUM
  7. CYCLOBENZAPRINE. [Concomitant]
     Active Substance: CYCLOBENZAPRINE
  8. LASIX [Concomitant]
     Active Substance: FUROSEMIDE
  9. CALCIUM CARBONATE;COLECALCIFEROL [Concomitant]
     Active Substance: CALCIUM CARBONATE\CHOLECALCIFEROL
  10. XL184 [Suspect]
     Active Substance: CABOZANTINIB
     Indication: NON-SMALL CELL LUNG CANCER
     Dosage: ON 09/NOV/2020, THE PATIENT RECEIVED THE MOST RECENT DOSE OF CABOZANTINIB PRIOR TO THE EVENT ONSET.
     Route: 048
     Dates: start: 20200816, end: 20201127
  11. MORPHINE [Concomitant]
     Active Substance: MORPHINE
  12. IMODIUM [Concomitant]
     Active Substance: LOPERAMIDE HYDROCHLORIDE
  13. XL184 [Suspect]
     Active Substance: CABOZANTINIB
     Route: 048
  14. SENNA [Concomitant]
     Active Substance: SENNA LEAF\SENNOSIDES\SENNOSIDES A AND B
  15. ACETAMINOPHEN. [Concomitant]
     Active Substance: ACETAMINOPHEN
  16. PANTOPRAZOLE [Concomitant]
     Active Substance: PANTOPRAZOLE
  17. TAMSULOSIN [Concomitant]
     Active Substance: TAMSULOSIN
  18. LORAZEPAM. [Concomitant]
     Active Substance: LORAZEPAM
  19. ATENOLOL. [Concomitant]
     Active Substance: ATENOLOL
  20. ELIQUIS [Concomitant]
     Active Substance: APIXABAN
  21. NACL [Concomitant]
     Active Substance: SODIUM CHLORIDE
     Dosage: 0.9%
  22. TRAVATAN [Concomitant]
     Active Substance: TRAVOPROST
  23. CLOBETASOL [Concomitant]
     Active Substance: CLOBETASOL

REACTIONS (1)
  - Failure to thrive [Not Recovered/Not Resolved]

NARRATIVE: CASE EVENT DATE: 20201117
